FAERS Safety Report 16377192 (Version 1)
Quarter: 2019Q2

REPORT INFORMATION
  Report Type: Spontaneous
  Country: DE (occurrence: DE)
  Receive Date: 20190531
  Receipt Date: 20190531
  Transmission Date: 20190711
  Serious: Yes (Other)
  Sender: FDA-Public Use
  Company Number: PHHY2019DE120498

PATIENT
  Age: 33 Year
  Sex: Female

DRUGS (6)
  1. METHOTREXATE. [Suspect]
     Active Substance: METHOTREXATE
     Indication: ABORTION
     Dosage: 20 MG, UNK
     Route: 065
  2. PROSTAGLANDIN F2 ALPHA [Concomitant]
     Active Substance: DINOPROST
     Dosage: 5 MG, UNK
     Route: 041
  3. ORNIPRESSIN [Concomitant]
     Indication: PRODUCT USED FOR UNKNOWN INDICATION
     Dosage: UNK, (2.5 I.E.)
     Route: 065
  4. SULPROSTONE [Concomitant]
     Active Substance: SULPROSTONE
     Indication: PRODUCT USED FOR UNKNOWN INDICATION
     Dosage: 1.5 MG, UNK
     Route: 041
  5. PROSTAGLANDIN F2 ALPHA [Concomitant]
     Active Substance: DINOPROST
     Indication: BLEEDING TIME SHORTENED
     Dosage: 10 UG, UNK,INJECTED INTO THE AMNIOTIC SAC
     Route: 065
  6. GEMEPROST [Concomitant]
     Active Substance: GEMEPROST
     Indication: PRODUCT USED FOR UNKNOWN INDICATION
     Dosage: 1 MG, UNK
     Route: 067

REACTIONS (3)
  - Drug ineffective for unapproved indication [Recovered/Resolved]
  - Haemorrhage [Unknown]
  - Off label use [Unknown]
